FAERS Safety Report 5125569-3 (Version None)
Quarter: 2006Q4

REPORT INFORMATION
  Report Type: 
  Country: None (occurrence: None)
  Receive Date: 20061006
  Receipt Date: 20060927
  Transmission Date: 20070319
  Serious: Yes (Other)
  Sender: FDA-Public Use
  Company Number: 2006116924

PATIENT
  Age: 49 Year
  Sex: Female
  Weight: 68.0396 kg

DRUGS (2)
  1. BENADRYL [Suspect]
     Indication: ARTHROPOD BITE
     Dosage: 1 ULTRATAB 4 TIMES, ORAL
     Route: 048
     Dates: start: 20060926
  2. BENADRYL CREAM EXTRA STRENGTH  (DIPHENHYDRAMINE, ZINC ACETATE) [Suspect]
     Indication: ARTHROPOD BITE
     Dosage: UNSPECIFIED AMOUNT E TIMES, TOPICAL
     Route: 061
     Dates: start: 20060926, end: 20060926

REACTIONS (1)
  - HYPERSENSITIVITY [None]
